FAERS Safety Report 5210676-7 (Version None)
Quarter: 2007Q1

REPORT INFORMATION
  Report Type: 
  Country: None (occurrence: None)
  Receive Date: 20070117
  Receipt Date: 20070115
  Transmission Date: 20070707
  Serious: Yes (Other)
  Sender: FDA-Public Use
  Company Number: 2006SP004386

PATIENT
  Sex: Female

DRUGS (3)
  1. REQUIP [Suspect]
     Indication: PERIODIC LIMB MOVEMENT DISORDER
     Route: 048
     Dates: start: 20060901
  2. LUNESTA [Suspect]
     Indication: INSOMNIA
     Dosage: 3MG AT NIGHT
     Route: 048
     Dates: start: 20060901, end: 20061122
  3. PREVACID [Concomitant]
     Route: 048

REACTIONS (2)
  - HEPATIC ENZYME INCREASED [None]
  - INSOMNIA [None]
